FAERS Safety Report 5626573-9 (Version None)
Quarter: 2008Q1

REPORT INFORMATION
  Report Type: 
  Country: None (occurrence: None)
  Receive Date: 20080212
  Receipt Date: 20080201
  Transmission Date: 20080703
  Serious: Yes (Other)
  Sender: FDA-Public Use
  Company Number: 2008003187

PATIENT
  Sex: Female
  Weight: 70.7611 kg

DRUGS (1)
  1. ZYRTEC [Suspect]
     Indication: HYPERSENSITIVITY
     Dosage: (UNSPECIFIED), AS NEEDED, ORAL
     Route: 048

REACTIONS (21)
  - ABDOMINAL DISTENSION [None]
  - BALANCE DISORDER [None]
  - BREAST MASS [None]
  - CELLULITIS [None]
  - DIZZINESS [None]
  - DYSSTASIA [None]
  - FACIAL PAIN [None]
  - GAIT DISTURBANCE [None]
  - GASTRIC DISORDER [None]
  - MUSCLE SPASMS [None]
  - OEDEMA PERIPHERAL [None]
  - ONYCHOCLASIS [None]
  - PAIN [None]
  - PAIN IN EXTREMITY [None]
  - RASH [None]
  - SCAR [None]
  - SKIN CHAPPED [None]
  - SPIDER VEIN [None]
  - SPUTUM ABNORMAL [None]
  - SWELLING FACE [None]
  - TRICHORRHEXIS [None]
